FAERS Safety Report 5261214-4 (Version None)
Quarter: 2007Q1

REPORT INFORMATION
  Report Type: 
  Country: None (occurrence: None)
  Receive Date: 20070309
  Receipt Date: 20070227
  Transmission Date: 20070707
  Serious: Yes (Other)
  Sender: FDA-Public Use
  Company Number: US-PFIZER INC-2007015739

PATIENT
  Sex: Male
  Weight: 90.7 kg

DRUGS (7)
  1. CELEBREX [Suspect]
     Indication: ARTHRITIS
  2. CELEBREX [Suspect]
     Indication: ARTHRALGIA
  3. HYDROCODONE [Concomitant]
  4. NASONEX [Concomitant]
  5. ASTELIN [Concomitant]
  6. FEXOFENADINE [Concomitant]
  7. GLUCOSAMINE [Concomitant]

REACTIONS (6)
  - ARTHRITIS [None]
  - BLOOD PRESSURE FLUCTUATION [None]
  - C-REACTIVE PROTEIN INCREASED [None]
  - CHEST DISCOMFORT [None]
  - FIBROMYALGIA [None]
  - HYPERTENSION [None]
